FAERS Safety Report 6187577-3 (Version None)
Quarter: 2009Q2

REPORT INFORMATION
  Report Type: 
  Country: None (occurrence: None)
  Receive Date: 20090508
  Receipt Date: 20090423
  Transmission Date: 20091009
  Serious: Yes (Death)
  Sender: FDA-Public Use
  Company Number: IPS_01609_2009

PATIENT
  Sex: Male

DRUGS (1)
  1. APO-GO (APO-GO - APOMORPHINE HYDROCHLORIDE) (NOT SPECIFIED) [Suspect]
     Indication: PARKINSON'S DISEASE
     Dosage: (1.6 MG PER HOUR FOR 5 WEEKS 3 DAYS [FROM 08:00 H TO 20:00 H DAILY] SUBCUTANEOUS)
     Route: 058
     Dates: start: 20090312, end: 20090418

REACTIONS (2)
  - FALL [None]
  - TREMOR [None]
